FAERS Safety Report 21821227 (Version 1)
Quarter: 2023Q1

REPORT INFORMATION
  Report Type: Spontaneous
  Country: DE (occurrence: DE)
  Receive Date: 20230105
  Receipt Date: 20230105
  Transmission Date: 20230418
  Serious: No
  Sender: FDA-Public Use
  Company Number: None

PATIENT
  Age: 22 Year
  Sex: Male
  Weight: 64 kg

DRUGS (2)
  1. ISOTRETINOIN [Suspect]
     Active Substance: ISOTRETINOIN
     Indication: Acne
     Dosage: ESTIMATED INCOME UNTIL 03/29/2023, UNIT DOSE : 20 MG, FREQUENCY TIME : 1 DAY, THERAPY END DATE : NAS
     Route: 065
     Dates: start: 20220421
  2. ISOTRETINOIN [Suspect]
     Active Substance: ISOTRETINOIN
     Dosage: UNIT DOSE : 10 MG, FREQUENCY TIME : 1 DAY, DURATION : 56 DAYS
     Route: 065
     Dates: start: 20220223, end: 20220420

REACTIONS (16)
  - Blood urea decreased [Not Recovered/Not Resolved]
  - Dermatitis contact [Recovering/Resolving]
  - Abdominal discomfort [Unknown]
  - Anxiety disorder [Not Recovered/Not Resolved]
  - Back pain [Recovering/Resolving]
  - Lip dry [Not Recovered/Not Resolved]
  - Dry eye [Not Recovered/Not Resolved]
  - Dry mouth [Not Recovered/Not Resolved]
  - Hyperhidrosis [Not Recovered/Not Resolved]
  - Dry skin [Not Recovered/Not Resolved]
  - Mucosal dryness [Not Recovered/Not Resolved]
  - Depression [Not Recovered/Not Resolved]
  - Hand dermatitis [Not Recovered/Not Resolved]
  - Erythema [Not Recovered/Not Resolved]
  - Diarrhoea [Not Recovered/Not Resolved]
  - Sensitive skin [Not Recovered/Not Resolved]

NARRATIVE: CASE EVENT DATE: 20220101
